FAERS Safety Report 7518458-8 (Version None)
Quarter: 2011Q2

REPORT INFORMATION
  Report Type: 
  Country: None (occurrence: None)
  Receive Date: 20110601
  Receipt Date: 20110601
  Transmission Date: 20111010
  Serious: Yes (Other)
  Sender: FDA-Public Use
  Company Number: None

PATIENT
  Age: 10 Year
  Sex: Male
  Weight: 44 kg

DRUGS (2)
  1. SINGULAIR [Suspect]
     Indication: MULTIPLE ALLERGIES
     Dosage: 5 MG DAILY PO
     Route: 048
     Dates: start: 20110420, end: 20110510
  2. SINGULAIR [Suspect]
     Indication: ASTHMA
     Dosage: 5 MG DAILY PO
     Route: 048
     Dates: start: 20110420, end: 20110510

REACTIONS (3)
  - HALLUCINATION, VISUAL [None]
  - AGITATION [None]
  - AGGRESSION [None]
